FAERS Safety Report 12953392 (Version 8)
Quarter: 2017Q1

REPORT INFORMATION
  Report Type: Spontaneous
  Country: US (occurrence: US)
  Receive Date: 20161117
  Receipt Date: 20170317
  Transmission Date: 20170428
  Serious: Yes (Other)
  Sender: FDA-Public Use
  Company Number: US-PFIZER INC-2016497238

PATIENT
  Age: 78 Year
  Sex: Male
  Weight: 72.56 kg

DRUGS (15)
  1. SUTENT [Suspect]
     Active Substance: SUNITINIB MALATE
     Indication: RENAL CANCER METASTATIC
     Dosage: 50 MG, CYCLIC, (1 PO Q DAY FOR 2 WEEKS ON 1 WEEK OFF)
     Route: 048
     Dates: start: 20161103
  2. ZINC. [Concomitant]
     Active Substance: ZINC
     Dosage: UNK
  3. B-COMPLEX VITAMIN [Concomitant]
     Dosage: UNK
  4. PRILOSEC [Concomitant]
     Active Substance: OMEPRAZOLE MAGNESIUM
     Indication: GASTROOESOPHAGEAL REFLUX DISEASE
     Dosage: UNK
  5. PRILOSEC [Concomitant]
     Active Substance: OMEPRAZOLE MAGNESIUM
     Indication: DYSPEPSIA
  6. DIPHENHYDRAMINE. [Concomitant]
     Active Substance: DIPHENHYDRAMINE
     Indication: ECZEMA
     Dosage: 25 MG, 1X/DAY (AM)
  7. VITAMIN B12 [Concomitant]
     Active Substance: CYANOCOBALAMIN
     Dosage: UNK
  8. VITAMIN C [Concomitant]
     Active Substance: ASCORBIC ACID
     Dosage: UNK
  9. SUTENT [Suspect]
     Active Substance: SUNITINIB MALATE
     Dosage: 50 MG, CYCLIC, (2 WEEKS ON 1 WEEK OFF)
     Dates: start: 20170105
  10. BABY ASPIRIN [Concomitant]
     Active Substance: ASPIRIN
     Dosage: UNK
  11. ALOE VERA [Concomitant]
     Active Substance: ALOE VERA LEAF
     Dosage: UNK
  12. MEGACE [Concomitant]
     Active Substance: MEGESTROL ACETATE
     Dosage: UNK
  13. SUTENT [Suspect]
     Active Substance: SUNITINIB MALATE
     Dosage: 25 MG, CYCLIC [1 P.O. Q DAY, 2 WEEKS ON 1 WEEK OFF]
     Dates: start: 20170105
  14. DILTIAZEM. [Concomitant]
     Active Substance: DILTIAZEM
     Dosage: UNK
  15. OMEGA-3 ACIDS [Concomitant]
     Active Substance: OMEGA-3 FATTY ACIDS
     Dosage: UNK

REACTIONS (30)
  - Fatigue [Unknown]
  - Blister [Recovered/Resolved]
  - Eczema infected [Recovering/Resolving]
  - Skin irritation [Recovering/Resolving]
  - Haemoglobin decreased [Unknown]
  - Decreased appetite [Unknown]
  - Constipation [Unknown]
  - Dysgeusia [Unknown]
  - Neoplasm progression [Unknown]
  - Yellow skin [Recovering/Resolving]
  - Pain in extremity [Not Recovered/Not Resolved]
  - Eye swelling [Recovered/Resolved]
  - Alopecia [Recovering/Resolving]
  - Skin exfoliation [Not Recovered/Not Resolved]
  - Palmar erythema [Unknown]
  - Skin fissures [Unknown]
  - Nausea [Recovered/Resolved]
  - Insomnia [Unknown]
  - Gastrooesophageal reflux disease [Unknown]
  - Tooth abscess [Unknown]
  - Stomatitis [Recovered/Resolved]
  - Weight decreased [Recovering/Resolving]
  - Tooth disorder [Recovering/Resolving]
  - Dyspepsia [Unknown]
  - Tooth infection [Unknown]
  - Dry skin [Not Recovered/Not Resolved]
  - Impaired healing [Recovering/Resolving]
  - Skin hypertrophy [Unknown]
  - Toothache [Unknown]
  - Faeces discoloured [Unknown]

NARRATIVE: CASE EVENT DATE: 20170125
